FAERS Safety Report 7256816-X (Version None)
Quarter: 2011Q1

REPORT INFORMATION
  Report Type: 
  Country: None (occurrence: None)
  Receive Date: 20110129
  Receipt Date: 20100614
  Transmission Date: 20110831
  Serious: No
  Sender: FDA-Public Use
  Company Number: US-ABBOTT-10P-163-0652359-00

PATIENT
  Sex: Female
  Weight: 106.69 kg

DRUGS (6)
  1. CLOBETISOL [Concomitant]
     Indication: PSORIASIS
     Route: 061
  2. HUMIRA [Suspect]
     Indication: PSORIASIS
  3. TRAMADOL HCL [Concomitant]
     Indication: PRODUCT USED FOR UNKNOWN INDICATION
  4. MELOXICAM [Concomitant]
     Indication: PRODUCT USED FOR UNKNOWN INDICATION
  5. HUMIRA [Suspect]
     Indication: PSORIATIC ARTHROPATHY
     Dosage: RECEIVED 3 INJECTIONS
     Route: 058
  6. PROVERA [Concomitant]
     Indication: UTERINE DISORDER

REACTIONS (1)
  - INJECTION SITE PAIN [None]
